FAERS Safety Report 9222045 (Version 1)
Quarter: 2013Q2

REPORT INFORMATION
  Report Type: Spontaneous
  Country: US (occurrence: None)
  Receive Date: 20130408
  Receipt Date: 20130408
  Transmission Date: 20140414
  Serious: Yes (Other)
  Sender: FDA-Public Use
  Company Number: IPC201303-000116

PATIENT
  Age: 75 Year
  Sex: Female
  Weight: 68.04 kg

DRUGS (6)
  1. HYDROCHLOROTHIAZIDE (HYDROCHLOROTHIAZIDE) [Suspect]
     Dates: start: 20130201, end: 20130323
  2. AMOXICILLIN (AMOXYCILLIN) [Concomitant]
  3. HYSTAMINE (HISTAMINE) [Concomitant]
  4. SODIUM NITRATE (SODIUM NITRATE) [Concomitant]
  5. MINIPRESS (PRAZOSIN) [Concomitant]
  6. ALLOPURINOL [Concomitant]

REACTIONS (3)
  - Loss of consciousness [None]
  - Dehydration [None]
  - Chromaturia [None]
